FAERS Safety Report 22289932 (Version 1)
Quarter: 2023Q2

REPORT INFORMATION
  Report Type: Spontaneous
  Country: GB (occurrence: None)
  Receive Date: 20230505
  Receipt Date: 20230505
  Transmission Date: 20230721
  Serious: Yes (Disabling, Other)
  Sender: FDA-Public Use
  Company Number: 2023A099876

PATIENT
  Sex: Male

DRUGS (4)
  1. ACALABRUTINIB [Suspect]
     Active Substance: ACALABRUTINIB
     Indication: Chronic lymphocytic leukaemia
     Dosage: 100MG BD; ;
     Dates: start: 202207, end: 202304
  2. ACCORD-UK ACICLOVIR [Concomitant]
     Indication: Prophylaxis
     Dates: start: 202207, end: 202304
  3. COTRIMOXAZOLE [Concomitant]
     Active Substance: SULFAMETHOXAZOLE\TRIMETHOPRIM
     Indication: Prophylaxis
     Dates: start: 202207, end: 202304
  4. RAMIPRIL [Concomitant]
     Active Substance: RAMIPRIL
     Indication: Hypertension
     Dates: start: 201405

REACTIONS (1)
  - Tympanic membrane perforation [Recovering/Resolving]

NARRATIVE: CASE EVENT DATE: 20230201
